FAERS Safety Report 5105046-6 (Version None)
Quarter: 2006Q3

REPORT INFORMATION
  Report Type: 
  Country: None (occurrence: None)
  Receive Date: 20060914
  Receipt Date: 20060728
  Transmission Date: 20061208
  Serious: Yes (Disabling)
  Sender: FDA-Public Use
  Company Number: US-BOEHRINGER INGELHEIM PHARMACEUTICALS, INC.-2006-BP-08727BP

PATIENT
  Age: 59 Year
  Sex: Female
  Weight: 107.05 kg

DRUGS (9)
  1. CATAPRES [Suspect]
     Indication: HYPERTENSION
     Route: 048
     Dates: start: 19970501, end: 20000101
  2. CATAPRES [Suspect]
     Indication: BLOOD PRESSURE
  3. GLUCOPHAGE [Concomitant]
     Indication: DIABETES MELLITUS
  4. FISH OIL [Concomitant]
  5. NEURONTIN [Concomitant]
     Indication: PAIN
     Route: 048
  6. ACTOS [Concomitant]
  7. GLUCOSAMINE [Concomitant]
  8. PRILOSEC [Concomitant]
  9. ASPIRIN [Concomitant]

REACTIONS (10)
  - ANXIETY [None]
  - ARTHRALGIA [None]
  - BLINDNESS [None]
  - BLINDNESS UNILATERAL [None]
  - BLOOD GLUCOSE INCREASED [None]
  - DEPRESSION [None]
  - DIABETES MELLITUS [None]
  - PALPITATIONS [None]
  - RETINAL DEGENERATION [None]
  - WEIGHT INCREASED [None]
